FAERS Safety Report 9815851 (Version 1)
Quarter: 2014Q1

REPORT INFORMATION
  Report Type: Report from Study
  Country: CA (occurrence: CA)
  Receive Date: 20140114
  Receipt Date: 20140114
  Transmission Date: 20141002
  Serious: Yes (Hospitalization)
  Sender: FDA-Public Use
  Company Number: CA-JNJFOC-20140104880

PATIENT
  Age: 69 Year
  Sex: Female
  Weight: 77 kg

DRUGS (5)
  1. REMICADE [Suspect]
     Indication: CROHN^S DISEASE
     Route: 042
     Dates: start: 20130927
  2. ADALAT [Concomitant]
     Route: 065
  3. IMURAN [Concomitant]
     Route: 048
     Dates: start: 20130916
  4. VANCO [Concomitant]
     Route: 042
  5. PIP-TAZO [Concomitant]
     Route: 042

REACTIONS (3)
  - Abdominal abscess [Unknown]
  - Fistula [Unknown]
  - Impaired healing [Not Recovered/Not Resolved]
